FAERS Safety Report 4908336-2 (Version None)
Quarter: 2006Q1

REPORT INFORMATION
  Report Type: 
  Country: None (occurrence: None)
  Receive Date: 20060210
  Receipt Date: 20060202
  Transmission Date: 20060701
  Serious: Yes (Death, Other)
  Sender: FDA-Public Use
  Company Number: BE-ABBOTT-06P-013-0324134-00

PATIENT
  Age: 41 Year
  Sex: Male

DRUGS (8)
  1. CYCLOSPORINE [Suspect]
     Indication: DRUG USE FOR UNKNOWN INDICATION
     Dates: start: 19990829, end: 19991028
  2. TACROLIMUS [Concomitant]
     Indication: IMMUNOSUPPRESSION
  3. PREDNISONE [Concomitant]
     Indication: IMMUNOSUPPRESSION
  4. MYCOPHENOLATE MOFETIL [Concomitant]
     Indication: IMMUNOSUPPRESSION
  5. METOPROLOLSUCCINAT [Concomitant]
     Indication: DRUG USE FOR UNKNOWN INDICATION
  6. AMLODIPINE [Concomitant]
     Indication: DRUG USE FOR UNKNOWN INDICATION
  7. BENAZEPRIL HCL [Concomitant]
     Indication: DRUG USE FOR UNKNOWN INDICATION
  8. PAROXETINE HCL [Concomitant]
     Indication: DRUG USE FOR UNKNOWN INDICATION

REACTIONS (19)
  - CANDIDIASIS [None]
  - CELLULITIS [None]
  - CONVULSION [None]
  - DEATH [None]
  - GASTRIC HAEMORRHAGE [None]
  - ILIAC ARTERY THROMBOSIS [None]
  - INTRA-ABDOMINAL HAEMORRHAGE [None]
  - NEPHRECTOMY [None]
  - PERIPHERAL ISCHAEMIA [None]
  - PERITONITIS [None]
  - PNEUMONIA [None]
  - POST PROCEDURAL COMPLICATION [None]
  - PYREXIA [None]
  - RENAL FAILURE ACUTE [None]
  - RESPIRATORY FAILURE [None]
  - SMALL INTESTINAL HAEMORRHAGE [None]
  - TRANSPLANT REJECTION [None]
  - URETERIC STENOSIS [None]
  - WOUND DEHISCENCE [None]
